FAERS Safety Report 23351686 (Version 1)
Quarter: 2023Q4

REPORT INFORMATION
  Report Type: Spontaneous
  Country: ES (occurrence: ES)
  Receive Date: 20231229
  Receipt Date: 20231229
  Transmission Date: 20240109
  Serious: Yes (Other)
  Sender: FDA-Public Use
  Company Number: ES-002147023-NVSC2020ES096627

PATIENT
  Age: 39 Year
  Sex: Female

DRUGS (14)
  1. MACITENTAN [Suspect]
     Active Substance: MACITENTAN
     Indication: Skin ulcer
     Dosage: UNK
     Route: 048
  2. ALPROSTADIL [Concomitant]
     Active Substance: ALPROSTADIL
     Indication: Skin ulcer
     Dosage: UNK
     Route: 065
  3. ALPROSTADIL [Concomitant]
     Active Substance: ALPROSTADIL
     Indication: Raynaud^s phenomenon
  4. CYCLOPHOSPHAMIDE [Concomitant]
     Active Substance: CYCLOPHOSPHAMIDE
     Indication: Mixed connective tissue disease
     Dosage: UNK, BOLUS
     Route: 065
  5. OPSUMIT [Concomitant]
     Active Substance: MACITENTAN
     Indication: Skin ulcer
     Dosage: UNK
     Route: 048
  6. AZATHIOPRINE [Interacting]
     Active Substance: AZATHIOPRINE
     Indication: Mixed connective tissue disease
     Dosage: UNK
     Route: 065
  7. AZATHIOPRINE [Interacting]
     Active Substance: AZATHIOPRINE
     Indication: Immunosuppressant drug therapy
  8. BOSENTAN [Interacting]
     Active Substance: BOSENTAN
     Indication: Skin ulcer
     Dosage: UNK
     Route: 048
  9. BOSENTAN [Interacting]
     Active Substance: BOSENTAN
     Indication: Mixed connective tissue disease
  10. MYCOPHENOLATE MOFETIL [Interacting]
     Active Substance: MYCOPHENOLATE MOFETIL
     Indication: Immunosuppressant drug therapy
     Dosage: 2.5-3.0 MG/DAY IN TWO DIVIDED DOSES
     Route: 065
  11. MYCOPHENOLATE MOFETIL [Interacting]
     Active Substance: MYCOPHENOLATE MOFETIL
     Indication: Mixed connective tissue disease
  12. PROGRAF [Interacting]
     Active Substance: TACROLIMUS
     Indication: Mixed connective tissue disease
     Dosage: 2.5-3.0 MG/DAY IN TWO DIVIDED DOSES
     Route: 065
  13. RITUXIMAB [Interacting]
     Active Substance: RITUXIMAB
     Indication: Mixed connective tissue disease
     Dosage: UNK,PERFUSION
     Route: 065
  14. RITUXIMAB [Interacting]
     Active Substance: RITUXIMAB
     Indication: Immunosuppressant drug therapy

REACTIONS (7)
  - Enterocolitis [Unknown]
  - Haematotoxicity [Unknown]
  - Drug interaction [Unknown]
  - Hypersensitivity [Unknown]
  - Therapy partial responder [Unknown]
  - Off label use [Unknown]
  - Product use in unapproved indication [Unknown]
